FAERS Safety Report 7405015-7 (Version None)
Quarter: 2011Q2

REPORT INFORMATION
  Report Type: 
  Country: None (occurrence: None)
  Receive Date: 20110411
  Receipt Date: 20110317
  Transmission Date: 20111010
  Serious: No
  Sender: FDA-Public Use
  Company Number: US-B.I. PHARMACEUTICALS,INC./RIDGEFIELD-2011-BP-08443BP

PATIENT
  Sex: Male

DRUGS (16)
  1. FINASTERIDE [Concomitant]
     Indication: PROSTATOMEGALY
  2. POTASSIUM CHLORIDE [Concomitant]
     Indication: PROPHYLAXIS
  3. A SUPPLEMENT FOR PROSTATE HEALTH [Concomitant]
     Indication: SUPPLEMENTATION THERAPY
  4. PRADAXA [Suspect]
     Indication: ATRIAL FIBRILLATION
     Dosage: 300 MG
     Route: 048
     Dates: start: 20110303
  5. METOPROLOL TARTRATE [Concomitant]
  6. COENZYME Q10 [Concomitant]
     Indication: SUPPLEMENTATION THERAPY
  7. LOSARTAN POTASSIUM [Concomitant]
  8. GRAPE SEED EXTRACT [Concomitant]
     Indication: SUPPLEMENTATION THERAPY
  9. DOXAZOSIN [Concomitant]
  10. IRON [Concomitant]
     Indication: ANAEMIA
  11. KRILL OIL [Concomitant]
     Indication: SUPPLEMENTATION THERAPY
  12. LEVOTHROID [Concomitant]
     Indication: THYROID DISORDER
  13. SIMVASTATIN [Concomitant]
     Indication: BLOOD CHOLESTEROL INCREASED
  14. CALCIUM [Concomitant]
     Indication: SUPPLEMENTATION THERAPY
  15. LASIX [Concomitant]
     Indication: CARDIAC FAILURE CONGESTIVE
  16. CARAC [Concomitant]
     Indication: PRECANCEROUS SKIN LESION
     Route: 061
     Dates: start: 20110201, end: 20110310

REACTIONS (3)
  - COUGH [None]
  - ERYTHEMA [None]
  - EYE DISCHARGE [None]
